FAERS Safety Report 6019431-1 (Version None)
Quarter: 2008Q4

REPORT INFORMATION
  Report Type: 
  Country: None (occurrence: None)
  Receive Date: 20081224
  Receipt Date: 20081215
  Transmission Date: 20090506
  Serious: Yes (Hospitalization)
  Sender: FDA-Public Use
  Company Number: JP-JNJFOC-20081106265

PATIENT
  Age: 80 Year
  Sex: Male

DRUGS (14)
  1. CRAVIT [Suspect]
     Indication: PNEUMONIA BACTERIAL
     Route: 048
  2. CRAVIT [Suspect]
     Indication: BRONCHITIS
     Dosage: INITIATED IN EARLY NOVEMBER
     Route: 048
  3. PL [Suspect]
     Indication: PNEUMONIA BACTERIAL
     Route: 048
  4. PL [Suspect]
     Indication: BRONCHITIS
     Route: 048
  5. UNKNOWN MEDICATION [Concomitant]
     Indication: BENIGN PROSTATIC HYPERPLASIA
     Route: 048
  6. MAGLAX [Concomitant]
     Indication: CONSTIPATION
     Route: 048
  7. ASPIRIN [Concomitant]
     Indication: ANGINA UNSTABLE
     Route: 048
  8. MYONAL [Concomitant]
     Indication: PERIARTHRITIS
     Route: 048
  9. ALLEGRA [Concomitant]
     Indication: CHRONIC SINUSITIS
     Route: 048
  10. MOBIC [Concomitant]
     Indication: PERIARTHRITIS
     Route: 048
  11. ADALAT CC [Concomitant]
     Indication: ANGINA UNSTABLE
     Route: 048
  12. LANSOPRAZOLE [Concomitant]
     Indication: GASTRIC ULCER
     Route: 048
  13. MEVALOTIN [Concomitant]
     Indication: HYPERLIPIDAEMIA
     Route: 048
  14. ARGAMATE [Concomitant]
     Indication: HYPERTENSION
     Route: 048

REACTIONS (1)
  - INTERSTITIAL LUNG DISEASE [None]
